FAERS Safety Report 5535721-0 (Version None)
Quarter: 2007Q4

REPORT INFORMATION
  Report Type: 
  Country: None (occurrence: None)
  Receive Date: 20071204
  Receipt Date: 20071204
  Transmission Date: 20080405
  Serious: Yes (Hospitalization)
  Sender: FDA-Public Use
  Company Number: None

PATIENT
  Sex: Female
  Weight: 58.18 kg

DRUGS (2)
  1. CARBOPLATIN [Suspect]
     Dosage: 644 MG
     Dates: start: 20061025, end: 20061025
  2. TAXOL [Suspect]
     Dosage: 217 MG
     Dates: end: 20061025

REACTIONS (1)
  - BILE DUCT OBSTRUCTION [None]
